FAERS Safety Report 13433797 (Version 1)
Quarter: 2017Q2

REPORT INFORMATION
  Report Type: Spontaneous
  Country: SE (occurrence: SE)
  Receive Date: 20170412
  Receipt Date: 20170412
  Transmission Date: 20170830
  Serious: Yes (Hospitalization)
  Sender: FDA-Public Use
  Company Number: SE-TEVA-758960ISR

PATIENT
  Age: 74 Year
  Sex: Female

DRUGS (2)
  1. MYLERAN [Suspect]
     Active Substance: BUSULFAN
     Route: 065
  2. PREDNISOLONE. [Suspect]
     Active Substance: PREDNISOLONE
     Route: 065

REACTIONS (1)
  - Agranulocytosis [Recovered/Resolved]
